FAERS Safety Report 10715557 (Version 1)
Quarter: 2015Q1

REPORT INFORMATION
  Report Type: Spontaneous
  Country: US (occurrence: US)
  Receive Date: 20150116
  Receipt Date: 20150116
  Transmission Date: 20150721
  Serious: No
  Sender: FDA-Public Use
  Company Number: US-EMD SERONO-8004375

PATIENT
  Age: 49 Year
  Sex: Female

DRUGS (1)
  1. REBIF [Suspect]
     Active Substance: INTERFERON BETA-1A
     Indication: MULTIPLE SCLEROSIS
     Route: 030

REACTIONS (3)
  - Abdominal pain [Recovered/Resolved]
  - Vision blurred [Recovering/Resolving]
  - Incorrect route of drug administration [Unknown]

NARRATIVE: CASE EVENT DATE: 20141228
